FAERS Safety Report 24228709 (Version 3)
Quarter: 2024Q4

REPORT INFORMATION
  Report Type: Spontaneous
  Country: US (occurrence: US)
  Receive Date: 20240820
  Receipt Date: 20241227
  Transmission Date: 20250115
  Serious: No
  Sender: PFIZER
  Company Number: US-PFIZER INC-202400239530

PATIENT
  Age: 63 Year
  Sex: Female

DRUGS (2)
  1. BRAFTOVI [Suspect]
     Active Substance: ENCORAFENIB
     Indication: Neoplasm malignant
     Dosage: 75 MG, 4X/DAY (TAKE 4 CAPSULES DAILY)
     Route: 048
  2. MEKTOVI [Concomitant]
     Active Substance: BINIMETINIB
     Dosage: 30 MG, 2X/DAY (TAKE 2 TABLETS TWO TIMES DAY)
     Route: 048

REACTIONS (1)
  - Dysphagia [Unknown]
